FAERS Safety Report 12085271 (Version 1)
Quarter: 2016Q1

REPORT INFORMATION
  Report Type: Spontaneous
  Country: CZ (occurrence: CZ)
  Receive Date: 20160217
  Receipt Date: 20160217
  Transmission Date: 20160526
  Serious: Yes (Hospitalization, Other)
  Sender: FDA-Public Use
  Company Number: CZ-WATSON-2016-02533

PATIENT
  Age: 30 Year
  Sex: Male
  Weight: 79 kg

DRUGS (3)
  1. VALPROAT CHRONO [Concomitant]
     Indication: AFFECT LABILITY
     Dosage: UNK UNK, BID
     Route: 048
     Dates: start: 20150630, end: 20150812
  2. ANTABUSE [Suspect]
     Active Substance: DISULFIRAM
     Indication: ALCOHOLISM
     Dosage: 400 MG, 2/WEEK
     Route: 048
     Dates: start: 20150612, end: 20150818
  3. APO-IBUPROFEN [Concomitant]
     Active Substance: IBUPROFEN
     Indication: HEADACHE
     Dosage: UNK
     Route: 048

REACTIONS (2)
  - Liver function test increased [Unknown]
  - Drug-induced liver injury [Unknown]

NARRATIVE: CASE EVENT DATE: 20150819
